FAERS Safety Report 8161419-9 (Version None)
Quarter: 2012Q1

REPORT INFORMATION
  Report Type: 
  Country: None (occurrence: None)
  Receive Date: 20120224
  Receipt Date: 20120203
  Transmission Date: 20120608
  Serious: No
  Sender: FDA-Public Use
  Company Number: US-MYLANLABS-2012S1001317

PATIENT
  Age: 72 Year
  Sex: Male

DRUGS (3)
  1. BUDESONIDE [Suspect]
     Indication: COLITIS MICROSCOPIC
     Route: 048
     Dates: start: 20111201, end: 20120113
  2. ANTIGOUT PREPARATIONS [Concomitant]
     Indication: GOUT
  3. ORAL ANTIDIABETICS [Concomitant]
     Indication: DIABETES MELLITUS

REACTIONS (2)
  - DIARRHOEA [None]
  - DRUG INEFFECTIVE [None]
